FAERS Safety Report 20318393 (Version 1)
Quarter: 2022Q1

REPORT INFORMATION
  Report Type: Spontaneous
  Country: US (occurrence: None)
  Receive Date: 20220110
  Receipt Date: 20220110
  Transmission Date: 20220423
  Serious: Yes (Hospitalization)
  Sender: FDA-Public Use
  Company Number: None

PATIENT
  Sex: Female

DRUGS (1)
  1. TOBI PODHALER [Suspect]
     Active Substance: TOBRAMYCIN
     Indication: Myocardial ischaemia
     Dosage: FREQUENCY : TWICE A DAY; INHALE 4 CAPSULES VIA PODHALER TWICE DAILY ALTERNATING FOR 28 DAYS ON 28 DA
     Route: 055
     Dates: start: 20210218

REACTIONS (1)
  - Hypervolaemia [None]
